APPROVED DRUG PRODUCT: GUANABENZ ACETATE
Active Ingredient: GUANABENZ ACETATE
Strength: EQ 4MG BASE
Dosage Form/Route: TABLET;ORAL
Application: A074025 | Product #001
Applicant: WATSON LABORATORIES INC
Approved: Feb 28, 1994 | RLD: No | RS: No | Type: DISCN